FAERS Safety Report 11488106 (Version 7)
Quarter: 2019Q2

REPORT INFORMATION
  Report Type: Spontaneous
  Country: US (occurrence: US)
  Receive Date: 20150909
  Receipt Date: 20190626
  Transmission Date: 20190711
  Serious: Yes (Hospitalization, Other)
  Sender: FDA-Public Use
  Company Number: US-PFIZER INC-2015295635

PATIENT
  Age: 58 Year
  Sex: Female
  Weight: 73.5 kg

DRUGS (30)
  1. VITAMIN D3 CALCIUM [Concomitant]
     Active Substance: CALCIUM\CHOLECALCIFEROL
     Dosage: 2000 IU, 2X/DAY (TAKE 2000 UNITS BY MOUTH TWICE A DAY)
     Route: 048
  2. SYNTHROID [Concomitant]
     Active Substance: LEVOTHYROXINE SODIUM
     Dosage: 100 UG, DAILY (TAKE 100 MCG BY MOUTH DAILY)
     Route: 048
  3. INDERAL [Concomitant]
     Active Substance: PROPRANOLOL HYDROCHLORIDE
     Dosage: 20 MG, DAILY (TAKE 1 TABLET (20 MG TOTAL) BY MOUTH DAILY)
     Route: 048
  4. SEPTRA DS [Concomitant]
     Active Substance: SULFAMETHOXAZOLE\TRIMETHOPRIM
     Dosage: 1 DF, UNK (1 TAB 3 TIMES WEEKLY)
  5. TYLENOL [Concomitant]
     Active Substance: ACETAMINOPHEN
     Dosage: 2 DF, 2X/DAY (TAKE 2 TABLETS (1000 MG TOTAL) BY MOUTH 2 (TWO) TIMES DAILY)
     Route: 048
  6. PROTONIX [Concomitant]
     Active Substance: PANTOPRAZOLE SODIUM
     Dosage: 40 MG, 2X/DAY (EC TABLET,TAKE 1 TABLET (40 MG TOTAL) BY MOUTH TWICE A DAY)
     Route: 048
  7. VALTREX [Concomitant]
     Active Substance: VALACYCLOVIR HYDROCHLORIDE
     Dosage: 3 DF, DAILY (TAKE 3 TABLETS (1500 MG TOTAL) BY MOUTH DAILY)
     Route: 048
  8. RAPAMUNE [Suspect]
     Active Substance: SIROLIMUS
     Dosage: 1 MG, UNK (1 MG 4 TIMES A WEEK)
  9. RAPAMUNE [Suspect]
     Active Substance: SIROLIMUS
     Dosage: 1.5 MG, 1X/DAY
  10. PREDNISONE. [Concomitant]
     Active Substance: PREDNISONE
     Dosage: UNK
  11. VALCYTE [Concomitant]
     Active Substance: VALGANCICLOVIR HYDROCHLORIDE
     Dosage: UNK
  12. AZITHROMYCIN ANHYDROUS. [Concomitant]
     Active Substance: AZITHROMYCIN ANHYDROUS
     Indication: PROPHYLAXIS
     Dosage: UNK
  13. BENADRYL [Concomitant]
     Active Substance: DIPHENHYDRAMINE HYDROCHLORIDE
     Indication: PRURITUS
     Dosage: 50 MG, AS NEEDED (TAKE 50 MG BY MOUTH NIGHTLY AS NEEDED FOR ITCHING)
     Route: 048
  14. TACROLIMUS. [Concomitant]
     Active Substance: TACROLIMUS
     Dosage: UNK (LOW DOSE TACROLIMUS)
  15. EXCEDRIN MIGRAINE [Concomitant]
     Active Substance: ACETAMINOPHEN\ASPIRIN\CAFFEINE
     Indication: PAIN
     Dosage: UNK UNK, AS NEEDED (TAKE 1 TABLET BY MOUTH EVERY 6 (SIX) HOURS AS NEEDED FOR PAIN. TAKE 1-2 TAB PRN)
     Route: 048
  16. RAPAMUNE [Suspect]
     Active Substance: SIROLIMUS
     Dosage: 1 MG, 1X/DAY
     Route: 048
  17. LIPITOR [Concomitant]
     Active Substance: ATORVASTATIN CALCIUM
     Indication: HYPERLIPIDAEMIA
     Dosage: 20 MG, 1X/DAY (TAKE 1 TABLET (20 MG TOTAL) BY MOUTH NIGHTLY AT BEDTIME)
     Route: 048
  18. MAGNESIUM OXIDE. [Concomitant]
     Active Substance: MAGNESIUM OXIDE
     Indication: HYPOMAGNESAEMIA
     Dosage: 133 MG, DAILY (TAKE 133 MG BY MOUTH DAILY)
     Route: 048
  19. LEVOXYL [Concomitant]
     Active Substance: LEVOTHYROXINE SODIUM
     Dosage: 100 UG, DAILY
     Route: 048
  20. DELTASONE [Concomitant]
     Active Substance: PREDNISONE
     Dosage: 7.5 MG, DAILY (TAKE 1.5 TABLET (7.5 MG TOTAL) BY MOUTH DAILY)
     Route: 048
  21. BACTRIM [Concomitant]
     Active Substance: SULFAMETHOXAZOLE\TRIMETHOPRIM
     Dosage: 1 DF, UNK (1 TAB 3 TIMES WEEKLY)
  22. RAPAMUNE [Suspect]
     Active Substance: SIROLIMUS
     Indication: PROPHYLAXIS AGAINST TRANSPLANT REJECTION
     Dosage: 1MG ONE DAY AND 0.5 MG ON SECOND DAY
     Route: 048
  23. RAPAMUNE [Suspect]
     Active Substance: SIROLIMUS
     Dosage: 1.5 MG, 1X/DAY
  24. SEPTRA [Concomitant]
     Active Substance: SULFAMETHOXAZOLE\TRIMETHOPRIM
     Indication: ANTIFUNGAL PROPHYLAXIS
     Dosage: UNK
  25. PROPRANOLOL [Concomitant]
     Active Substance: PROPRANOLOL HYDROCHLORIDE
     Indication: HEADACHE
     Dosage: UNK, 2X/DAY
  26. LEVOTHYROXINE. [Concomitant]
     Active Substance: LEVOTHYROXINE
     Indication: HYPOTHYROIDISM
     Dosage: UNK
  27. ZITHROMAX [Concomitant]
     Active Substance: AZITHROMYCIN DIHYDRATE
     Dosage: 250 MG, UNK (TAKE 1 TABLET (250 MG TOTAL) BY MOUTH 3 (THREE) TIMES A WEEK)
     Route: 048
  28. CALCIUM + VITAMIN D [Concomitant]
     Active Substance: CALCIUM\VITAMIN D
     Dosage: 500-125 MG, 3X/DAY (TAKE 1 TABLET BY MOUTH 3 (THREE) TIMES DAILY)
     Route: 048
  29. RAPAMUNE [Suspect]
     Active Substance: SIROLIMUS
     Dosage: 0.5 MG, UNK (0.5 MG 3 TIMES A WEEK ON M/W/F)
  30. IMITREX [Concomitant]
     Active Substance: SUMATRIPTAN SUCCINATE
     Indication: HEADACHE
     Dosage: UNK (PLEASE TAKE PRN FOR HEADACHE, PLEASE DO NOT TAKE MORE THAN 200 MG DAILY)

REACTIONS (15)
  - Blindness unilateral [Not Recovered/Not Resolved]
  - Red blood cell count abnormal [Unknown]
  - Blood cholesterol increased [Unknown]
  - Sleep apnoea syndrome [Unknown]
  - Product use in unapproved indication [Unknown]
  - Off label use [Unknown]
  - Gastroenteritis viral [Unknown]
  - Incorrect dose administered [Unknown]
  - Rhinovirus infection [Recovered/Resolved]
  - Middle insomnia [Unknown]
  - Renal impairment [Unknown]
  - Visual impairment [Unknown]
  - Epstein-Barr virus infection [Not Recovered/Not Resolved]
  - Headache [Unknown]
  - Somnolence [Unknown]

NARRATIVE: CASE EVENT DATE: 2014
